FAERS Safety Report 7881785-9 (Version None)
Quarter: 2011Q4

REPORT INFORMATION
  Report Type: 
  Country: None (occurrence: None)
  Receive Date: 20111101
  Receipt Date: 20110527
  Transmission Date: 20120403
  Serious: No
  Sender: FDA-Public Use
  Company Number: US-AMGEN-USASP2011027692

PATIENT
  Sex: Female

DRUGS (2)
  1. ENBREL [Suspect]
     Indication: PSORIATIC ARTHROPATHY
     Dosage: 50 MG, QWK
     Dates: start: 20090629
  2. ENBREL [Suspect]
     Indication: PSORIASIS

REACTIONS (9)
  - INSOMNIA [None]
  - ARTHRALGIA [None]
  - FATIGUE [None]
  - JOINT EFFUSION [None]
  - BACK PAIN [None]
  - INFLUENZA LIKE ILLNESS [None]
  - SKIN PLAQUE [None]
  - PAIN IN EXTREMITY [None]
  - PAIN [None]
